FAERS Safety Report 23037028 (Version 1)
Quarter: 2023Q4

REPORT INFORMATION
  Report Type: Spontaneous
  Country: US (occurrence: US)
  Receive Date: 20231006
  Receipt Date: 20231006
  Transmission Date: 20240110
  Serious: Yes (Life-Threatening, Hospitalization, Other)
  Sender: FDA-Public Use
  Company Number: US-MLMSERVICE-20230918-4552003-1

PATIENT

DRUGS (3)
  1. DILTIAZEM [Suspect]
     Active Substance: DILTIAZEM
     Indication: Supraventricular tachycardia
     Dosage: 100 MILLIGRAM
     Route: 042
  2. METOPROLOL [Suspect]
     Active Substance: METOPROLOL
     Indication: Supraventricular tachycardia
     Dosage: UNKNOWN
     Route: 042
  3. ADENOSINE [Concomitant]
     Active Substance: ADENOSINE
     Indication: Supraventricular tachycardia
     Dosage: UNKNOWN
     Route: 065

REACTIONS (3)
  - Cardiac arrest [Recovered/Resolved]
  - Incorrect dose administered [Recovered/Resolved]
  - Overdose [Recovered/Resolved]
